FAERS Safety Report 4804505-0 (Version None)
Quarter: 2005Q4

REPORT INFORMATION
  Report Type: 
  Country: None (occurrence: None)
  Receive Date: 20051017
  Receipt Date: 20051003
  Transmission Date: 20060501
  Serious: Yes (Hospitalization)
  Sender: FDA-Public Use
  Company Number: 2005137516

PATIENT
  Age: 65 Year
  Sex: Female
  Weight: 54 kg

DRUGS (15)
  1. SOLU-MEDROL [Suspect]
     Indication: RETROPERITONEAL CANCER
     Dosage: 80-120 MG, INTRAVENOUS
     Route: 042
     Dates: start: 20050426, end: 20050814
  2. IFOSFAMIDE [Suspect]
     Indication: RETROPERITONEAL CANCER
     Dosage: 4100 MG, INTRAVENOUS
     Route: 042
     Dates: start: 20050426, end: 20050814
  3. MESNA [Suspect]
     Indication: RETROPERITONEAL CANCER
     Dosage: 6000 MG, INTRAVENOUS
     Route: 042
     Dates: start: 20050426, end: 20050814
  4. DOXORUBICIN HCL [Suspect]
     Indication: RETROPERITONEAL CANCER
     Dosage: 33 MG, INTRAVENOUS
     Route: 042
     Dates: start: 20050426, end: 20050814
  5. LEVOTHYROXINE SODIUM [Suspect]
     Indication: ILL-DEFINED DISORDER
  6. METOCLOPRAMIDE [Suspect]
     Indication: ILL-DEFINED DISORDER
     Dosage: 10-30 MG
     Dates: start: 20050426
  7. RAMIPRIL [Concomitant]
  8. SIMVASTATIN [Concomitant]
  9. ZOPICLONE (ZOPICLONE) [Concomitant]
  10. FERROUS SULFATE TAB [Concomitant]
  11. ACETAMINOPHEN [Concomitant]
  12. EPOETIN BETA (EPOETIN BETA) [Concomitant]
  13. PEGFILGRASTIM (PEGFILGRASTIM) [Concomitant]
  14. CHLORPROMAZINE HCL [Concomitant]
  15. ZOPHREN (ONDANSETRON HYDROCHLORIDE) [Concomitant]

REACTIONS (19)
  - BETA 2 MICROGLOBULIN INCREASED [None]
  - BONE MARROW FAILURE [None]
  - CONFUSIONAL STATE [None]
  - DEHYDRATION [None]
  - DISORIENTATION [None]
  - GLUCOSE URINE PRESENT [None]
  - HYPERCHLORAEMIA [None]
  - HYPERNATRAEMIA [None]
  - HYPERPHOSPHATURIA [None]
  - HYPOKALAEMIA [None]
  - HYPOPHOSPHATAEMIA [None]
  - LEUKOCYTOSIS [None]
  - MENTAL STATUS CHANGES [None]
  - METABOLIC ACIDOSIS [None]
  - POLYDIPSIA [None]
  - POLYURIA [None]
  - SOMNOLENCE [None]
  - TACHYCARDIA [None]
  - WEIGHT DECREASED [None]
